FAERS Safety Report 22026436 (Version 1)
Quarter: 2023Q1

REPORT INFORMATION
  Report Type: Spontaneous
  Country: US (occurrence: None)
  Receive Date: 20230223
  Receipt Date: 20230223
  Transmission Date: 20230418
  Serious: No
  Sender: FDA-Public Use
  Company Number: US-ROCHE-3171811

PATIENT
  Sex: Female

DRUGS (41)
  1. XOLAIR [Suspect]
     Active Substance: OMALIZUMAB
     Indication: Idiopathic urticaria
     Dosage: STRENGTH: 150MG/ML
     Route: 058
     Dates: start: 202106
  2. XOLAIR [Suspect]
     Active Substance: OMALIZUMAB
  3. XOLAIR [Suspect]
     Active Substance: OMALIZUMAB
  4. XOLAIR [Suspect]
     Active Substance: OMALIZUMAB
     Route: 058
     Dates: start: 20201223
  5. XOLAIR [Suspect]
     Active Substance: OMALIZUMAB
  6. XOLAIR [Suspect]
     Active Substance: OMALIZUMAB
  7. XOLAIR [Suspect]
     Active Substance: OMALIZUMAB
     Route: 058
     Dates: start: 20210126
  8. XOLAIR [Suspect]
     Active Substance: OMALIZUMAB
  9. XOLAIR [Suspect]
     Active Substance: OMALIZUMAB
  10. XOLAIR [Suspect]
     Active Substance: OMALIZUMAB
     Route: 058
     Dates: start: 20210225
  11. XOLAIR [Suspect]
     Active Substance: OMALIZUMAB
  12. XOLAIR [Suspect]
     Active Substance: OMALIZUMAB
  13. XOLAIR [Suspect]
     Active Substance: OMALIZUMAB
     Route: 058
     Dates: start: 20210409
  14. XOLAIR [Suspect]
     Active Substance: OMALIZUMAB
  15. XOLAIR [Suspect]
     Active Substance: OMALIZUMAB
  16. XOLAIR [Suspect]
     Active Substance: OMALIZUMAB
     Route: 058
     Dates: start: 20210602
  17. XOLAIR [Suspect]
     Active Substance: OMALIZUMAB
  18. XOLAIR [Suspect]
     Active Substance: OMALIZUMAB
  19. XOLAIR [Suspect]
     Active Substance: OMALIZUMAB
     Route: 058
     Dates: start: 20210722
  20. XOLAIR [Suspect]
     Active Substance: OMALIZUMAB
  21. XOLAIR [Suspect]
     Active Substance: OMALIZUMAB
  22. XOLAIR [Suspect]
     Active Substance: OMALIZUMAB
     Route: 058
     Dates: start: 20210927
  23. XOLAIR [Suspect]
     Active Substance: OMALIZUMAB
  24. XOLAIR [Suspect]
     Active Substance: OMALIZUMAB
  25. XOLAIR [Suspect]
     Active Substance: OMALIZUMAB
     Route: 058
     Dates: start: 20211220
  26. XOLAIR [Suspect]
     Active Substance: OMALIZUMAB
  27. XOLAIR [Suspect]
     Active Substance: OMALIZUMAB
  28. XOLAIR [Suspect]
     Active Substance: OMALIZUMAB
     Route: 058
     Dates: start: 20220307
  29. XOLAIR [Suspect]
     Active Substance: OMALIZUMAB
  30. XOLAIR [Suspect]
     Active Substance: OMALIZUMAB
  31. XOLAIR [Suspect]
     Active Substance: OMALIZUMAB
     Dosage: RIGNT AND LEFT ARMS
     Route: 058
     Dates: start: 20220608
  32. XOLAIR [Suspect]
     Active Substance: OMALIZUMAB
  33. XOLAIR [Suspect]
     Active Substance: OMALIZUMAB
  34. ACETAMINOPHEN [Concomitant]
     Active Substance: ACETAMINOPHEN
     Route: 048
  35. DOCUSATE CALCIUM [Concomitant]
     Active Substance: DOCUSATE CALCIUM
  36. FERROUS SULFATE [Concomitant]
     Active Substance: FERROUS SULFATE
  37. FLONASE [Concomitant]
     Active Substance: FLUTICASONE PROPIONATE
  38. DILAUDID [Concomitant]
     Active Substance: HYDROMORPHONE HYDROCHLORIDE
  39. NAPROSYN [Concomitant]
     Active Substance: NAPROXEN
  40. MIRALAX [Concomitant]
     Active Substance: POLYETHYLENE GLYCOL 3350
  41. TYLENOL [Concomitant]
     Active Substance: ACETAMINOPHEN

REACTIONS (3)
  - Maternal exposure during pregnancy [Unknown]
  - Off label use [Unknown]
  - No adverse event [Unknown]
